FAERS Safety Report 19705496 (Version 1)
Quarter: 2021Q3

REPORT INFORMATION
  Report Type: Spontaneous
  Country: NZ (occurrence: NZ)
  Receive Date: 20210816
  Receipt Date: 20210816
  Transmission Date: 20211014
  Serious: Yes (Life-Threatening, Hospitalization)
  Sender: FDA-Public Use
  Company Number: NZ-MYLANLABS-2021M1051546

PATIENT
  Age: 15 Year
  Sex: Female

DRUGS (23)
  1. CEFTRIAXONE. [Suspect]
     Active Substance: CEFTRIAXONE
     Indication: PNEUMOCOCCAL SEPSIS
     Dosage: 2 GRAM, QD
     Route: 042
  2. EPINEPHRINE. [Suspect]
     Active Substance: EPINEPHRINE
     Indication: SHOCK
     Dosage: DOSE: 0.05MCG/KG/MIN
     Route: 065
  3. MEROPENEM. [Suspect]
     Active Substance: MEROPENEM
     Indication: STREPTOCOCCAL SEPSIS
     Dosage: UNK
     Route: 065
  4. ACTRAPID [Concomitant]
     Active Substance: INSULIN HUMAN
     Indication: DIABETIC KETOACIDOSIS
     Dosage: DOSE: 0.1 UNIT/KG
     Route: 042
  5. EPINEPHRINE. [Suspect]
     Active Substance: EPINEPHRINE
     Indication: DISTRIBUTIVE SHOCK
  6. METRONIDAZOLE. [Suspect]
     Active Substance: METRONIDAZOLE
     Indication: STREPTOCOCCAL SEPSIS
     Dosage: 500 MILLIGRAM, Q8H
     Route: 042
  7. NOREPINEPHRINE. [Suspect]
     Active Substance: NOREPINEPHRINE
     Indication: SHOCK
     Dosage: DOSE: 0.66MCG/KG/MIN
     Route: 065
  8. MEROPENEM. [Suspect]
     Active Substance: MEROPENEM
     Indication: PNEUMOCOCCAL SEPSIS
  9. GLUCOSE MONOHYDRATE W/POTASSIUM CHL/08546901/ [Concomitant]
     Indication: DIABETIC KETOACIDOSIS
     Dosage: DOSE: 100ML/HOUR
  10. CEFTRIAXONE. [Suspect]
     Active Substance: CEFTRIAXONE
     Indication: STREPTOCOCCAL SEPSIS
  11. NOREPINEPHRINE. [Suspect]
     Active Substance: NOREPINEPHRINE
     Indication: DISTRIBUTIVE SHOCK
     Dosage: DOSE: 0.45MCG/KG/MIN
     Route: 065
  12. VANCOMYCIN [Suspect]
     Active Substance: VANCOMYCIN
     Indication: STREPTOCOCCAL SEPSIS
     Dosage: UNK
     Route: 065
  13. PIPERACILLIN/TAZOBACTAM [Suspect]
     Active Substance: PIPERACILLIN SODIUM\TAZOBACTAM SODIUM
     Indication: STREPTOCOCCAL SEPSIS
     Dosage: 4.5 GRAM, Q6H
     Route: 042
  14. METRONIDAZOLE. [Suspect]
     Active Substance: METRONIDAZOLE
     Indication: PNEUMOCOCCAL SEPSIS
  15. PIPERACILLIN/TAZOBACTAM [Suspect]
     Active Substance: PIPERACILLIN SODIUM\TAZOBACTAM SODIUM
     Indication: PNEUMOCOCCAL SEPSIS
  16. CLINDAMYCIN. [Suspect]
     Active Substance: CLINDAMYCIN
     Indication: PNEUMOCOCCAL SEPSIS
  17. VASOPRESSIN. [Suspect]
     Active Substance: VASOPRESSIN
     Indication: SHOCK
     Dosage: DOSE: 2.4U/HR
     Route: 065
  18. BICARBONATE [Concomitant]
     Active Substance: SODIUM BICARBONATE
     Indication: DIABETIC KETOACIDOSIS
     Dosage: 100 MILLILITER
     Route: 065
  19. ACTRAPID [Concomitant]
     Active Substance: INSULIN HUMAN
     Dosage: DOSE: 0.5 UNITS/KG/DAY
     Route: 042
  20. VANCOMYCIN [Suspect]
     Active Substance: VANCOMYCIN
     Indication: PNEUMOCOCCAL SEPSIS
  21. VASOPRESSIN. [Suspect]
     Active Substance: VASOPRESSIN
     Indication: DISTRIBUTIVE SHOCK
  22. CLINDAMYCIN. [Suspect]
     Active Substance: CLINDAMYCIN
     Indication: STREPTOCOCCAL SEPSIS
     Dosage: UNK
     Route: 065
  23. SALINE                             /00075401/ [Concomitant]
     Active Substance: SODIUM CHLORIDE
     Indication: DIABETIC KETOACIDOSIS
     Dosage: TWO BOLUSES OF 10ML/KG
     Route: 065

REACTIONS (1)
  - Drug ineffective [Unknown]
